FAERS Safety Report 6390558-8 (Version None)
Quarter: 2009Q4

REPORT INFORMATION
  Report Type: 
  Country: None (occurrence: None)
  Receive Date: 20091003
  Receipt Date: 20090919
  Transmission Date: 20100525
  Serious: Yes (Hospitalization, Other)
  Sender: FDA-Public Use
  Company Number: ENTC2008-0241

PATIENT
  Age: 74 Year
  Sex: Female

DRUGS (4)
  1. STALEVO 100 [Suspect]
     Indication: PARKINSON'S DISEASE
     Dosage: 2 TABS (50/12.5/200 MG) ORAL
     Route: 048
     Dates: start: 20060101
  2. AKATINOL [Concomitant]
  3. EUTIROX [Concomitant]
  4. LEXAPRO [Concomitant]

REACTIONS (4)
  - FALL [None]
  - FEMUR FRACTURE [None]
  - LOWER LIMB FRACTURE [None]
  - PAIN IN EXTREMITY [None]
